FAERS Safety Report 10643379 (Version 1)
Quarter: 2014Q4

REPORT INFORMATION
  Report Type: Spontaneous
  Country: US (occurrence: None)
  Receive Date: 20141121
  Receipt Date: 20141121
  Transmission Date: 20150529
  Serious: No
  Sender: FDA-Public Use
  Company Number: 163-10004-14090929

PATIENT
  Age: 52 Year
  Sex: Male

DRUGS (2)
  1. OTEZLA [Suspect]
     Active Substance: APREMILAST
     Indication: PSORIASIS
     Route: 048
     Dates: start: 201407
  2. DEXILANT [Concomitant]
     Active Substance: DEXLANSOPRAZOLE

REACTIONS (4)
  - Abdominal discomfort [None]
  - Weight decreased [None]
  - Cough [None]
  - Throat irritation [None]

NARRATIVE: CASE EVENT DATE: 201408
